FAERS Safety Report 5344884-1 (Version None)
Quarter: 2007Q2

REPORT INFORMATION
  Report Type: 
  Country: None (occurrence: None)
  Receive Date: 20070416
  Receipt Date: 20070118
  Transmission Date: 20071010
  Serious: No
  Sender: FDA-Public Use
  Company Number: 2007SP000217

PATIENT
  Age: 81 Year
  Sex: Male
  Weight: 83.9154 kg

DRUGS (3)
  1. LUNESTA [Suspect]
     Indication: INSOMNIA
     Dosage: 2 MG;1X;ORAL
     Route: 048
     Dates: start: 20061201, end: 20061201
  2. PREDNISONE TAB [Concomitant]
  3. XANAX [Concomitant]

REACTIONS (2)
  - CONSTIPATION [None]
  - STOMACH DISCOMFORT [None]
